FAERS Safety Report 16253927 (Version 1)
Quarter: 2019Q2

REPORT INFORMATION
  Report Type: Spontaneous
  Country: CA (occurrence: CA)
  Receive Date: 20190430
  Receipt Date: 20190430
  Transmission Date: 20190711
  Serious: Yes (Hospitalization)
  Sender: FDA-Public Use
  Company Number: CA-TEVA-2019-CA-1043732

PATIENT
  Age: 6 Year
  Sex: Female
  Weight: 22 kg

DRUGS (2)
  1. PREDNISONE. [Suspect]
     Active Substance: PREDNISONE
     Dosage: INITIAL DOSAGE NOT STATED. LATER, PREDNISONE WAS TAPERED OVER 2 WEEKS
     Route: 065
  2. METHYLPREDNISOLONE. [Suspect]
     Active Substance: METHYLPREDNISOLONE
     Dosage: FOR 5 DAYS
     Route: 042

REACTIONS (5)
  - Brain herniation [Recovered/Resolved]
  - Coagulopathy [Recovered/Resolved]
  - Hemiplegia [Not Recovered/Not Resolved]
  - Haemorrhagic stroke [Recovered/Resolved]
  - Haemorrhage intracranial [Recovered/Resolved]
